FAERS Safety Report 6400103-6 (Version None)
Quarter: 2009Q4

REPORT INFORMATION
  Report Type: 
  Country: None (occurrence: None)
  Receive Date: 20091014
  Receipt Date: 20091009
  Transmission Date: 20100525
  Serious: Yes (Hospitalization)
  Sender: FDA-Public Use
  Company Number: B0597735A

PATIENT
  Age: 67 Year
  Sex: Female

DRUGS (3)
  1. TYVERB [Suspect]
     Dosage: 1250MG PER DAY
     Route: 048
     Dates: start: 20090715, end: 20090915
  2. NAVELBINE [Concomitant]
     Indication: BREAST CANCER
     Route: 042
     Dates: start: 20090715, end: 20090915
  3. FLUOROURACIL [Concomitant]
     Indication: BREAST CANCER
     Route: 042
     Dates: start: 20090715, end: 20090915

REACTIONS (1)
  - PULMONARY EMBOLISM [None]
